FAERS Safety Report 7739481-4 (Version None)
Quarter: 2011Q3

REPORT INFORMATION
  Report Type: 
  Country: None (occurrence: None)
  Receive Date: 20110906
  Receipt Date: 20110822
  Transmission Date: 20111222
  Serious: Yes (Hospitalization)
  Sender: FDA-Public Use
  Company Number: 2011MA012468

PATIENT
  Age: 77 Year
  Sex: Female

DRUGS (2)
  1. STREPSILS (STREPSILS) [Suspect]
     Indication: OROPHARYNGEAL PAIN
     Dosage: 1 DF; PO
     Route: 048
     Dates: start: 20110219, end: 20110219
  2. FEVERALL [Suspect]
     Dosage: PO
     Route: 048

REACTIONS (2)
  - PANIC REACTION [None]
  - HYPERSENSITIVITY [None]
